FAERS Safety Report 21398383 (Version 1)
Quarter: 2022Q3

REPORT INFORMATION
  Report Type: Spontaneous
  Country: BR (occurrence: BR)
  Receive Date: 20220930
  Receipt Date: 20220930
  Transmission Date: 20221027
  Serious: Yes (Other)
  Sender: FDA-Public Use
  Company Number: BR-SA-2022SA362495

PATIENT

DRUGS (2)
  1. LARONIDASE [Suspect]
     Active Substance: LARONIDASE
     Indication: Mucopolysaccharidosis I
     Dosage: UNK, QW
     Route: 042
     Dates: start: 20211029
  2. CETIRIZINE HYDROCHLORIDE [Concomitant]
     Active Substance: CETIRIZINE HYDROCHLORIDE
     Indication: Antiallergic therapy
     Route: 065

REACTIONS (6)
  - Autism spectrum disorder [Unknown]
  - Gait disturbance [Recovering/Resolving]
  - Atrophy [Recovering/Resolving]
  - Joint range of motion decreased [Recovering/Resolving]
  - Pain in extremity [Recovering/Resolving]
  - Drug hypersensitivity [Unknown]
